FAERS Safety Report 14164261 (Version 1)
Quarter: 2017Q4

REPORT INFORMATION
  Report Type: Spontaneous
  Country: US (occurrence: US)
  Receive Date: 20171106
  Receipt Date: 20171106
  Transmission Date: 20180321
  Serious: No
  Sender: FDA-Public Use
  Company Number: US-AMGEN-USASP2017058650

PATIENT
  Age: 85 Year
  Sex: Male

DRUGS (1)
  1. ARANESP [Suspect]
     Active Substance: DARBEPOETIN ALFA
     Indication: ANAEMIA
     Dosage: 200 MUG, Q2WK
     Route: 065
     Dates: start: 201703

REACTIONS (2)
  - Intercepted medication error [Unknown]
  - Off label use [Unknown]

NARRATIVE: CASE EVENT DATE: 20170405
